FAERS Safety Report 7036902-X (Version None)
Quarter: 2010Q4

REPORT INFORMATION
  Report Type: 
  Country: None (occurrence: None)
  Receive Date: 20101011
  Receipt Date: 20100930
  Transmission Date: 20110411
  Serious: Yes (Other)
  Sender: FDA-Public Use
  Company Number: GB-ASTRAZENECA-2010SE39415

PATIENT
  Age: 55 Year
  Sex: Male

DRUGS (5)
  1. MEROPENEM [Suspect]
     Indication: BRAIN ABSCESS
     Route: 042
     Dates: start: 20100804, end: 20100816
  2. OMEPRAZOLE [Concomitant]
  3. CEFTRIAXONE [Concomitant]
     Dates: start: 20100701, end: 20100803
  4. METRONIDAZOLE [Concomitant]
     Dates: start: 20100701, end: 20100803
  5. PARACETAMOL [Concomitant]

REACTIONS (5)
  - ALANINE AMINOTRANSFERASE INCREASED [None]
  - BLOOD ALKALINE PHOSPHATASE INCREASED [None]
  - HEADACHE [None]
  - LIVER FUNCTION TEST ABNORMAL [None]
  - NAUSEA [None]
